FAERS Safety Report 4431406-2 (Version None)
Quarter: 2004Q3

REPORT INFORMATION
  Report Type: 
  Country: None (occurrence: None)
  Receive Date: 20040824
  Receipt Date: 20040611
  Transmission Date: 20050211
  Serious: Yes (Hospitalization, Disabling, Other)
  Sender: FDA-Public Use
  Company Number: US-GLAXOSMITHKLINE-A0514321A

PATIENT
  Age: 25 Year
  Sex: Female

DRUGS (5)
  1. WELLBUTRIN [Suspect]
     Indication: DEPRESSION
     Dosage: 12.5G SINGLE DOSE
     Route: 048
  2. PAXIL [Suspect]
     Indication: DEPRESSION
     Dosage: 120MG SINGLE DOSE
  3. ATIVAN [Suspect]
     Indication: DRUG USE FOR UNKNOWN INDICATION
     Dosage: 30MG SINGLE DOSE
  4. MULTIVITAMIN [Concomitant]
  5. MINERAL TAB [Concomitant]

REACTIONS (2)
  - COMA [None]
  - OVERDOSE [None]
